FAERS Safety Report 8775177 (Version 5)
Quarter: 2013Q1

REPORT INFORMATION
  Report Type: Spontaneous
  Country: TR (occurrence: TR)
  Receive Date: 20120910
  Receipt Date: 20130128
  Transmission Date: 20140127
  Serious: Yes (Hospitalization)
  Sender: FDA-Public Use
  Company Number: TR-GILEAD-2012-0060666

PATIENT
  Sex: Female

DRUGS (2)
  1. VIREAD [Suspect]
     Indication: HEPATITIS B
     Dosage: UNK
  2. PEGINTERFERON [Suspect]
     Indication: HEPATITIS B

REACTIONS (8)
  - Hyperthyroidism [Unknown]
  - Depression [Unknown]
  - Agitation [Unknown]
  - Alopecia [Unknown]
  - Weight decreased [Unknown]
  - Insomnia [Unknown]
  - Nervousness [Unknown]
  - Autoimmune thyroiditis [Unknown]
